FAERS Safety Report 12759790 (Version 3)
Quarter: 2016Q4

REPORT INFORMATION
  Report Type: Report from Study
  Country: US (occurrence: US)
  Receive Date: 20160919
  Receipt Date: 20161104
  Transmission Date: 20170207
  Serious: Yes (Other)
  Sender: FDA-Public Use
  Company Number: PHEH2016US023804

PATIENT
  Age: 78 Year
  Sex: Female

DRUGS (1)
  1. VOTRIENT [Suspect]
     Active Substance: PAZOPANIB HYDROCHLORIDE
     Indication: PRODUCT USED FOR UNKNOWN INDICATION
     Route: 065

REACTIONS (6)
  - Renal cancer [Unknown]
  - Pancreatic carcinoma [Unknown]
  - Diarrhoea [Unknown]
  - Liver function test abnormal [Unknown]
  - Metastases to pancreas [Unknown]
  - Bone cancer [Unknown]

NARRATIVE: CASE EVENT DATE: 20161021
